FAERS Safety Report 5821529-5 (Version None)
Quarter: 2008Q3

REPORT INFORMATION
  Report Type: 
  Country: None (occurrence: None)
  Receive Date: 20080724
  Receipt Date: 20080211
  Transmission Date: 20090109
  Serious: No
  Sender: FDA-Public Use
  Company Number: US-BAYER-200810655BCC

PATIENT
  Sex: Female

DRUGS (1)
  1. MIDOL [Suspect]
     Indication: MENSTRUAL DISORDER
     Dosage: AS USED: 440 MG  UNIT DOSE: 220 MG
     Route: 048

REACTIONS (1)
  - MENSTRUAL DISORDER [None]
